FAERS Safety Report 8934436 (Version 1)
Quarter: 2012Q4

REPORT INFORMATION
  Report Type: Report from Study
  Country: US (occurrence: US)
  Receive Date: 20121128
  Receipt Date: 20121128
  Transmission Date: 20130627
  Serious: Yes (Life-Threatening, Hospitalization)
  Sender: FDA-Public Use
  Company Number: US-009507513-1211USA009022

PATIENT
  Age: 79 Year
  Sex: Male
  Weight: 77 kg

DRUGS (11)
  1. TEMODAR [Suspect]
     Indication: GLIOBLASTOMA MULTIFORME
     Dosage: 50 mg/m2, qd
  2. BEVACIZUMAB [Suspect]
     Indication: GLIOBLASTOMA MULTIFORME
     Dosage: Held because of wound 10 mg/m2, 1 in  2 wk
     Route: 042
     Dates: start: 20110422
  3. MK-0683 [Suspect]
     Dosage: 400 mg, one week on, one week off
     Dates: start: 20110422
  4. KEPPRA [Concomitant]
     Dosage: 1000 mg, bid
  5. LOVENOX [Concomitant]
     Dosage: 60 mg, bid
  6. ANDRODERM [Concomitant]
     Dosage: 5 mg, qd
  7. CORTEF [Concomitant]
     Dosage: 20mg AM  10mg PM
  8. KLOR-CON [Concomitant]
     Dosage: 1 DF, qd
  9. ULTRAM [Concomitant]
     Dosage: 50 mg, q4h
     Route: 048
  10. ASCORBIC ACID [Concomitant]
     Dosage: 500 mg, bid
  11. SERTRALINE HYDROCHLORIDE [Concomitant]
     Dosage: 25 mg, hs

REACTIONS (4)
  - Haemorrhagic stroke [Recovered/Resolved]
  - Gait disturbance [Recovered/Resolved]
  - Fatigue [Unknown]
  - Ataxia [Unknown]
